FAERS Safety Report 4282622-4 (Version None)
Quarter: 2004Q1

REPORT INFORMATION
  Report Type: 
  Country: None (occurrence: None)
  Receive Date: 20040130
  Receipt Date: 20021223
  Transmission Date: 20041129
  Serious: Yes (Other)
  Sender: FDA-Public Use
  Company Number: US-BRISTOL-MYERS SQUIBB COMPANY-12144424

PATIENT
  Age: 34 Year
  Sex: Male

DRUGS (4)
  1. SERZONE [Suspect]
     Indication: DEPRESSION
     Route: 048
     Dates: start: 20010113, end: 20010701
  2. NEURONTIN [Concomitant]
  3. WELLBUTRIN SR [Concomitant]
  4. ANTABUSE [Concomitant]

REACTIONS (11)
  - ABDOMINAL PAIN [None]
  - DIZZINESS [None]
  - FLATULENCE [None]
  - INSOMNIA [None]
  - LIVER FUNCTION TEST ABNORMAL [None]
  - NAUSEA [None]
  - NEUROPATHY [None]
  - PAIN [None]
  - RASH [None]
  - VERTIGO [None]
  - VISION BLURRED [None]
